FAERS Safety Report 19902315 (Version 1)
Quarter: 2021Q3

REPORT INFORMATION
  Report Type: Spontaneous
  Country: US (occurrence: US)
  Receive Date: 20210930
  Receipt Date: 20210930
  Transmission Date: 20211014
  Serious: No
  Sender: FDA-Public Use
  Company Number: US-SA-2021SA316500

PATIENT
  Age: 54 Year
  Sex: Male

DRUGS (1)
  1. APIDRA [Suspect]
     Active Substance: INSULIN GLULISINE
     Dosage: UNK
     Route: 065
     Dates: start: 2003

REACTIONS (4)
  - Blood glucose increased [Unknown]
  - Product prescribing issue [Unknown]
  - Product use issue [Unknown]
  - Drug effective for unapproved indication [Unknown]
